FAERS Safety Report 15275455 (Version 1)
Quarter: 2018Q3

REPORT INFORMATION
  Report Type: Spontaneous
  Country: US (occurrence: US)
  Receive Date: 20180814
  Receipt Date: 20180814
  Transmission Date: 20181010
  Serious: No
  Sender: FDA-Public Use
  Company Number: US-ELI_LILLY_AND_COMPANY-US201808006630

PATIENT
  Age: 11 Year
  Sex: Female

DRUGS (1)
  1. HUMATROPE [Suspect]
     Active Substance: SOMATROPIN
     Indication: PRODUCT USED FOR UNKNOWN INDICATION
     Dosage: 1.7 MG, UNKNOWN
     Route: 058
     Dates: start: 20180717

REACTIONS (4)
  - Injection site bruising [Recovered/Resolved]
  - Injection site haemorrhage [Recovered/Resolved]
  - Product preparation error [Recovered/Resolved]
  - Underdose [Recovered/Resolved]

NARRATIVE: CASE EVENT DATE: 20180717
